FAERS Safety Report 8165256-0 (Version None)
Quarter: 2012Q1

REPORT INFORMATION
  Report Type: 
  Country: None (occurrence: None)
  Receive Date: 20120222
  Receipt Date: 20120222
  Transmission Date: 20120608
  Serious: Yes (Hospitalization)
  Sender: FDA-Public Use
  Company Number: None

PATIENT
  Age: 66 Year
  Sex: Female
  Weight: 67.1324 kg

DRUGS (1)
  1. LUNESTA [Suspect]
     Indication: INSOMNIA
     Dosage: 3 MG 1X @ NIGHT
     Dates: start: 20100101

REACTIONS (9)
  - HEADACHE [None]
  - COUGH [None]
  - CHEST PAIN [None]
  - PAIN [None]
  - RASH [None]
  - FATIGUE [None]
  - THROAT IRRITATION [None]
  - GASTROOESOPHAGEAL REFLUX DISEASE [None]
  - PYREXIA [None]
